FAERS Safety Report 4837941-7 (Version None)
Quarter: 2005Q4

REPORT INFORMATION
  Report Type: 
  Country: None (occurrence: None)
  Receive Date: 20051128
  Receipt Date: 20051115
  Transmission Date: 20060501
  Serious: Yes (Life-Threatening, Hospitalization)
  Sender: FDA-Public Use
  Company Number: DE-ROCHE-424920

PATIENT
  Age: 73 Year
  Sex: Male
  Weight: 71 kg

DRUGS (2)
  1. CAPECITABINE [Suspect]
     Route: 048
     Dates: start: 20050614, end: 20050628
  2. OXALIPLATIN [Suspect]
     Route: 041
     Dates: start: 20050621, end: 20050621

REACTIONS (4)
  - ABDOMINAL PAIN [None]
  - CHILLS [None]
  - FEBRILE INFECTION [None]
  - FEBRILE NEUTROPENIA [None]
